FAERS Safety Report 4784202-0 (Version None)
Quarter: 2005Q3

REPORT INFORMATION
  Report Type: 
  Country: None (occurrence: None)
  Receive Date: 20050930
  Receipt Date: 20050920
  Transmission Date: 20060218
  Serious: Yes (Life-Threatening)
  Sender: FDA-Public Use
  Company Number: JP-BRISTOL-MYERS SQUIBB COMPANY-13118443

PATIENT
  Age: 61 Year
  Sex: Male

DRUGS (4)
  1. BRIPLATIN [Suspect]
     Indication: OESOPHAGEAL CARCINOMA
     Route: 041
     Dates: start: 20050905, end: 20050905
  2. KYTRIL [Suspect]
     Indication: NAUSEA
     Route: 041
     Dates: start: 20050905, end: 20050905
  3. DECADRON [Suspect]
     Indication: NAUSEA
     Route: 041
     Dates: start: 20050905, end: 20050905
  4. ALLOID [Concomitant]

REACTIONS (1)
  - SHOCK [None]
